FAERS Safety Report 6630324-9 (Version None)
Quarter: 2010Q1

REPORT INFORMATION
  Report Type: 
  Country: None (occurrence: None)
  Receive Date: 20100311
  Receipt Date: 20100301
  Transmission Date: 20100710
  Serious: Yes (Other)
  Sender: FDA-Public Use
  Company Number: US-BAXTER-2010BH005218

PATIENT
  Sex: Male

DRUGS (4)
  1. HEPARIN SODIUM INJECTION [Suspect]
     Indication: ANGIOGRAM
     Route: 065
     Dates: start: 20080211, end: 20080211
  2. HEPARIN SODIUM INJECTION [Suspect]
     Indication: CARDIOPULMONARY BYPASS
     Route: 065
     Dates: start: 20080211, end: 20080211
  3. HEPARIN SODIUM INJECTION [Suspect]
     Route: 065
     Dates: start: 20080214, end: 20080214
  4. HEPARIN SODIUM INJECTION [Suspect]
     Route: 065
     Dates: start: 20080214, end: 20080214

REACTIONS (1)
  - CEREBROVASCULAR ACCIDENT [None]
